FAERS Safety Report 18769752 (Version 1)
Quarter: 2021Q1

REPORT INFORMATION
  Report Type: Spontaneous
  Country: US (occurrence: US)
  Receive Date: 20210121
  Receipt Date: 20210121
  Transmission Date: 20210419
  Serious: No
  Sender: FDA-Public Use
  Company Number: US-TEVA-2021-US-1868751

PATIENT
  Age: 71 Year
  Sex: Male

DRUGS (2)
  1. RITUXAN [Concomitant]
     Active Substance: RITUXIMAB
     Route: 065
  2. NEFAZODONE HYDROCHLORIDE. [Suspect]
     Active Substance: NEFAZODONE HYDROCHLORIDE
     Indication: MAJOR DEPRESSION
     Route: 065

REACTIONS (1)
  - Weight decreased [Unknown]
